FAERS Safety Report 9422943 (Version 1)
Quarter: 2013Q3

REPORT INFORMATION
  Report Type: Spontaneous
  Country: JP (occurrence: JP)
  Receive Date: 20130726
  Receipt Date: 20130726
  Transmission Date: 20140515
  Serious: Yes (Death, Other)
  Sender: FDA-Public Use
  Company Number: JP-WATSON-2013-12162

PATIENT
  Age: 6 Year
  Sex: Male
  Weight: 20 kg

DRUGS (11)
  1. ETOPOSIDE (UNKNOWN) [Suspect]
     Indication: ACUTE MONOCYTIC LEUKAEMIA
     Dosage: 100 MG/M2, DAILY ON DAYS 1-5
     Route: 065
  2. ETOPOSIDE (UNKNOWN) [Suspect]
     Dosage: 150 MG/M2, DAILY ON DAYS 1-5
     Route: 065
  3. FLUDARABINE PHOSPHATE (ATLLC) [Suspect]
     Indication: ACUTE MONOCYTIC LEUKAEMIA
     Dosage: UNK
     Route: 065
  4. CYTARABINE [Suspect]
     Indication: ACUTE MONOCYTIC LEUKAEMIA
     Dosage: 3 G/M2, DAILY ON DAYS 1-3
     Route: 065
  5. CYTARABINE [Suspect]
     Dosage: 200 MG/M2, DAILY ON DAYS 6-12
     Route: 065
  6. MITOXANTRONE [Suspect]
     Indication: ACUTE MONOCYTIC LEUKAEMIA
     Dosage: 5 MG/M2, DAILY ON DAYS 6-10
     Route: 065
  7. IDARUBICIN [Suspect]
     Indication: ACUTE MONOCYTIC LEUKAEMIA
     Dosage: 10 MG/M2, DAILY ON DAY 1
     Route: 065
  8. GEMTUZUMAB OZOGAMICIN [Suspect]
     Indication: ACUTE MONOCYTIC LEUKAEMIA
     Dosage: UNK
     Route: 065
  9. SORAFENIB [Suspect]
     Indication: ACUTE MONOCYTIC LEUKAEMIA
     Dosage: 300 MG, DAILY
     Route: 065
  10. SORAFENIB [Suspect]
     Dosage: 150 MG, DAILY
     Route: 048
  11. TACROLIMUS (UNKNOWN) [Suspect]
     Indication: ACUTE GRAFT VERSUS HOST DISEASE
     Dosage: UNK
     Route: 065

REACTIONS (4)
  - Pulmonary haemorrhage [Fatal]
  - Respiratory failure [Fatal]
  - Cardiac failure acute [Recovered/Resolved]
  - Renal failure acute [Recovered/Resolved]
